FAERS Safety Report 10262260 (Version 1)
Quarter: 2014Q2

REPORT INFORMATION
  Report Type: Spontaneous
  Country: US (occurrence: US)
  Receive Date: 20140626
  Receipt Date: 20140626
  Transmission Date: 20141212
  Serious: No
  Sender: FDA-Public Use
  Company Number: US-009507513-1406USA011050

PATIENT
  Age: 25 Year
  Sex: Female
  Weight: 77.98 kg

DRUGS (1)
  1. NEXPLANON [Suspect]
     Indication: CONTRACEPTION
     Dosage: FREQUENCY-EVERY 3 YEARS
     Dates: start: 20130424

REACTIONS (2)
  - Weight increased [Unknown]
  - Menstruation irregular [Unknown]
